FAERS Safety Report 9894798 (Version 1)
Quarter: 2014Q1

REPORT INFORMATION
  Report Type: Spontaneous
  Country: FR (occurrence: FR)
  Receive Date: 20140213
  Receipt Date: 20140213
  Transmission Date: 20141002
  Serious: Yes (Hospitalization)
  Sender: FDA-Public Use
  Company Number: FR-BAXTER-2014BAX006015

PATIENT
  Age: 50 Year
  Sex: Female
  Weight: 71 kg

DRUGS (12)
  1. ENDOXAN 2000 MG, LYOPHILISAT POUR SOLUTION INJECTABLE [Suspect]
     Indication: B-CELL LYMPHOMA
     Route: 042
     Dates: start: 20131118, end: 20131121
  2. ENDOXAN 2000 MG, LYOPHILISAT POUR SOLUTION INJECTABLE [Suspect]
     Route: 042
     Dates: start: 20131206
  3. MABTHERA [Suspect]
     Indication: B-CELL LYMPHOMA
     Route: 042
     Dates: start: 20131118, end: 20131121
  4. MABTHERA [Suspect]
     Route: 042
     Dates: start: 20131206
  5. DOXORUBICINE ACCORD [Suspect]
     Indication: B-CELL LYMPHOMA
     Route: 042
     Dates: start: 20131118, end: 20131121
  6. DOXORUBICINE ACCORD [Suspect]
     Route: 042
     Dates: start: 20131206
  7. METHOTREXATE MYLAN [Suspect]
     Indication: B-CELL LYMPHOMA
     Route: 065
     Dates: start: 20131118, end: 20131121
  8. METHOTREXATE MYLAN [Suspect]
     Route: 065
     Dates: start: 20131206
  9. CORTANCYL [Suspect]
     Indication: B-CELL LYMPHOMA
     Route: 048
     Dates: start: 20131118, end: 20131122
  10. CORTANCYL [Suspect]
     Route: 048
     Dates: start: 20131206, end: 20131211
  11. VELCADE [Suspect]
     Indication: B-CELL LYMPHOMA
     Route: 058
     Dates: start: 20131118, end: 20131121
  12. VELCADE [Suspect]
     Route: 058
     Dates: start: 20131206

REACTIONS (4)
  - Hypokalaemia [Recovered/Resolved]
  - Pancytopenia [Recovered/Resolved]
  - Vomiting [Recovered/Resolved]
  - Diarrhoea [Recovered/Resolved]
